FAERS Safety Report 19506267 (Version 1)
Quarter: 2021Q3

REPORT INFORMATION
  Report Type: Spontaneous
  Country: US (occurrence: US)
  Receive Date: 20210708
  Receipt Date: 20210708
  Transmission Date: 20211014
  Serious: Yes (Life-Threatening)
  Sender: FDA-Public Use
  Company Number: None

PATIENT
  Age: 65 Year
  Sex: Female
  Weight: 71.4 kg

DRUGS (1)
  1. FERAHEME [Suspect]
     Active Substance: FERUMOXYTOL NON-STOICHIOMETRIC MAGNETITE
     Indication: IRON DEFICIENCY ANAEMIA
     Dosage: ?          OTHER FREQUENCY:ONCE;?
     Route: 041
     Dates: start: 20210611, end: 20210611

REACTIONS (7)
  - Infusion related reaction [None]
  - Seizure like phenomena [None]
  - Hyperhidrosis [None]
  - Pallor [None]
  - Lip discolouration [None]
  - Unresponsive to stimuli [None]
  - Decorticate posture [None]

NARRATIVE: CASE EVENT DATE: 20210611
